FAERS Safety Report 5798670-9 (Version None)
Quarter: 2008Q3

REPORT INFORMATION
  Report Type: 
  Country: None (occurrence: None)
  Receive Date: 20080702
  Receipt Date: 20080623
  Transmission Date: 20090109
  Serious: Yes (Other)
  Sender: FDA-Public Use
  Company Number: US-ELI_LILLY_AND_COMPANY-US200806005293

PATIENT
  Sex: Female

DRUGS (1)
  1. FORTEO [Suspect]
     Indication: OSTEOPOROSIS
     Dosage: UNK, UNK
     Dates: start: 20060601

REACTIONS (11)
  - ASTHENIA [None]
  - COGNITIVE DISORDER [None]
  - COUGH [None]
  - DEMENTIA ALZHEIMER'S TYPE [None]
  - FALL [None]
  - LUNG NEOPLASM [None]
  - MEMORY IMPAIRMENT [None]
  - MENTAL STATUS CHANGES [None]
  - MOBILITY DECREASED [None]
  - MUSCULAR WEAKNESS [None]
  - RENAL DISORDER [None]
